FAERS Safety Report 12654390 (Version 1)
Quarter: 2016Q3

REPORT INFORMATION
  Report Type: Spontaneous
  Country: US (occurrence: None)
  Receive Date: 20160815
  Receipt Date: 20160815
  Transmission Date: 20161109
  Serious: No
  Sender: FDA-Public Use
  Company Number: None

PATIENT
  Age: 63 Year
  Sex: Male

DRUGS (1)
  1. SPRYCEL [Suspect]
     Active Substance: DASATINIB
     Indication: CHRONIC HEPATITIS C
     Route: 048
     Dates: start: 20150821

REACTIONS (5)
  - Rash [None]
  - Rash pruritic [None]
  - Pulmonary hypertension [None]
  - Abdominal discomfort [None]
  - Rash erythematous [None]

NARRATIVE: CASE EVENT DATE: 20160812
